FAERS Safety Report 20724409 (Version 1)
Quarter: 2022Q2

REPORT INFORMATION
  Report Type: Spontaneous
  Country: US (occurrence: None)
  Receive Date: 20220418
  Receipt Date: 20220418
  Transmission Date: 20220721
  Serious: Yes (Life-Threatening, Hospitalization)
  Sender: FDA-Public Use
  Company Number: None

PATIENT
  Age: 83 Year
  Sex: Male

DRUGS (4)
  1. HYALURONIC ACID [Suspect]
     Active Substance: HYALURONIC ACID
     Indication: Dysphonia
     Dates: start: 20220414, end: 20220414
  2. ELIQUIS [Suspect]
     Active Substance: APIXABAN
     Indication: Anticoagulant therapy
     Route: 048
     Dates: start: 20220414
  3. INSULIN NOS [Concomitant]
     Active Substance: INSULIN NOS
  4. METOPROLOL [Concomitant]
     Active Substance: METOPROLOL

REACTIONS (3)
  - Laryngeal haematoma [None]
  - Laryngeal oedema [None]
  - Respiratory distress [None]

NARRATIVE: CASE EVENT DATE: 20220414
